FAERS Safety Report 7954061-3 (Version None)
Quarter: 2011Q4

REPORT INFORMATION
  Report Type: 
  Country: None (occurrence: None)
  Receive Date: 20111129
  Receipt Date: 20111121
  Transmission Date: 20120403
  Serious: No
  Sender: FDA-Public Use
  Company Number: 2011-01316

PATIENT
  Age: 24 Year
  Sex: Female

DRUGS (1)
  1. ZICAM COLD REMEDY NASAL GEL [Suspect]
     Indication: NASOPHARYNGITIS
     Dosage: 1 DOSE INTO EACH NOSTRIL
     Dates: start: 20111118, end: 20111118

REACTIONS (2)
  - ANOSMIA [None]
  - EXPIRED DRUG ADMINISTERED [None]
